FAERS Safety Report 8426393-6 (Version None)
Quarter: 2012Q2

REPORT INFORMATION
  Report Type: 
  Country: None (occurrence: None)
  Receive Date: 20120611
  Receipt Date: 20120528
  Transmission Date: 20120825
  Serious: Yes (Other)
  Sender: FDA-Public Use
  Company Number: AU-CELGENEUS-008-C5013-12020192

PATIENT
  Sex: Male

DRUGS (15)
  1. FERROUS FUMARATE + FOLATE [Concomitant]
     Route: 065
     Dates: start: 20090101
  2. METOPROLOL TARTRATE [Concomitant]
  3. DOCUSATE SODIUM W/SENNOSIDE A+B [Concomitant]
     Indication: CONSTIPATION
     Route: 065
     Dates: start: 20090504
  4. THALIDOMIDE [Suspect]
     Dosage: 100 MILLIGRAM
     Route: 048
     Dates: start: 20100414, end: 20100909
  5. ESOMEPRAZOLE [Concomitant]
     Route: 065
     Dates: start: 20080801
  6. THALIDOMIDE [Suspect]
     Indication: MULTIPLE MYELOMA
     Dosage: 200 MILLIGRAM
     Route: 048
     Dates: start: 20090324
  7. MELPHALAN HYDROCHLORIDE [Suspect]
     Dosage: 10 MILLIGRAM
     Route: 065
     Dates: start: 20100611, end: 20100614
  8. RAMIPRIL [Concomitant]
     Indication: HYPERTENSION
     Route: 065
     Dates: start: 20091016
  9. MELPHALAN HYDROCHLORIDE [Suspect]
     Dosage: 6 MILLIGRAM
     Route: 065
     Dates: start: 20100730, end: 20100802
  10. PREDNISONE [Suspect]
     Indication: MULTIPLE MYELOMA
     Dosage: 115 MILLIGRAM
     Route: 065
     Dates: start: 20090324
  11. MELPHALAN HYDROCHLORIDE [Suspect]
     Indication: MULTIPLE MYELOMA
     Dosage: 14 MILLIGRAM
     Route: 065
     Dates: start: 20090324
  12. PREDNISONE [Suspect]
     Dosage: 170 MILLIGRAM
     Route: 065
     Dates: end: 20100802
  13. ASPIRIN [Concomitant]
     Indication: THROMBOSIS PROPHYLAXIS
     Route: 065
     Dates: start: 20080801
  14. ASCORBIC ACID [Concomitant]
     Indication: VITAMIN SUPPLEMENTATION
     Route: 065
     Dates: start: 20090101
  15. METOPROLOL TARTRATE [Concomitant]
     Indication: HYPERTENSION
     Route: 065
     Dates: start: 20080801

REACTIONS (1)
  - PROSTATE CANCER [None]
